FAERS Safety Report 5968675-3 (Version None)
Quarter: 2008Q4

REPORT INFORMATION
  Report Type: 
  Country: None (occurrence: None)
  Receive Date: 20081121
  Receipt Date: 20081121
  Transmission Date: 20090506
  Serious: Yes (Other)
  Sender: FDA-Public Use
  Company Number: None

PATIENT
  Age: 60 Year
  Sex: Female
  Weight: 58.9676 kg

DRUGS (1)
  1. JANUVIA [Suspect]
     Indication: HYPERGLYCAEMIA
     Dosage: 100 MG ONCE A DAY
     Dates: start: 20081113, end: 20081120

REACTIONS (1)
  - GASTROOESOPHAGEAL REFLUX DISEASE [None]
